FAERS Safety Report 11984810 (Version 1)
Quarter: 2016Q1

REPORT INFORMATION
  Report Type: Report from Study
  Country: CZ (occurrence: CZ)
  Receive Date: 20160201
  Receipt Date: 20160201
  Transmission Date: 20160526
  Serious: Yes (Other)
  Sender: FDA-Public Use
  Company Number: CZ-ABBVIE-16K-217-1545555-00

PATIENT
  Age: 28 Year
  Sex: Female

DRUGS (1)
  1. HUMIRA [Suspect]
     Active Substance: ADALIMUMAB
     Indication: ANKYLOSING SPONDYLITIS
     Route: 058
     Dates: start: 20131220, end: 20141119

REACTIONS (3)
  - Haemorrhage in pregnancy [Recovered/Resolved]
  - Exposure during pregnancy [Unknown]
  - Blighted ovum [Unknown]

NARRATIVE: CASE EVENT DATE: 20140924
